FAERS Safety Report 6570372-0 (Version None)
Quarter: 2010Q1

REPORT INFORMATION
  Report Type: 
  Country: None (occurrence: None)
  Receive Date: 20100204
  Receipt Date: 20100120
  Transmission Date: 20100710
  Serious: Yes (Hospitalization)
  Sender: FDA-Public Use
  Company Number: JP-MERCK-0911USA04885

PATIENT
  Age: 59 Year
  Sex: Female
  Weight: 50 kg

DRUGS (11)
  1. FOSAMAX [Suspect]
     Indication: OSTEOPOROSIS
     Route: 048
     Dates: start: 20060809, end: 20071113
  2. FOSAMAX [Suspect]
     Route: 048
     Dates: start: 20071114, end: 20080331
  3. RHEUMATREX [Concomitant]
     Indication: RHEUMATOID ARTHRITIS
     Dosage: IT ADMINISTERS IT THE TOTAL DOSE ON FRIDAY
     Route: 048
  4. ASPARA CA [Concomitant]
     Indication: OSTEOPOROSIS
     Route: 048
  5. MICARDIS [Concomitant]
     Indication: HYPERTENSION
     Route: 048
  6. MOBIC [Concomitant]
     Indication: RHEUMATOID ARTHRITIS
     Route: 048
  7. AMLODIPINE BESYLATE [Concomitant]
     Indication: HYPERTENSION
     Route: 048
  8. FOLIAMIN [Concomitant]
     Indication: RHEUMATOID ARTHRITIS
     Route: 048
  9. PREDNISOLONE [Concomitant]
     Indication: RHEUMATOID ARTHRITIS
     Route: 048
     Dates: start: 20071114, end: 20080108
  10. PREDNISOLONE [Concomitant]
     Route: 048
     Dates: end: 20071113
  11. ENBREL [Concomitant]
     Indication: RHEUMATOID ARTHRITIS
     Route: 058
     Dates: start: 20071017, end: 20080109

REACTIONS (2)
  - BONE METABOLISM DISORDER [None]
  - PUBIS FRACTURE [None]
